FAERS Safety Report 5147070-3 (Version None)
Quarter: 2006Q4

REPORT INFORMATION
  Report Type: 
  Country: None (occurrence: None)
  Receive Date: 20061103
  Receipt Date: 20061018
  Transmission Date: 20070319
  Serious: Yes (Life-Threatening, Hospitalization)
  Sender: FDA-Public Use
  Company Number: PAR_0883_2006

PATIENT
  Age: 37 Year
  Sex: Male

DRUGS (4)
  1. DEXAMETHASONE TAB [Suspect]
     Indication: MOUNTAIN SICKNESS ACUTE
     Dosage: 8 MG ONCE PO
     Route: 048
  2. DEXAMETHASONE TAB [Suspect]
     Indication: MOUNTAIN SICKNESS ACUTE
     Dosage: 4 MG Q8HR PO
     Route: 048
  3. ASPIRIN [Suspect]
     Indication: HEADACHE
     Dosage: 0.5 G Q8HR
  4. ALCOHOL [Suspect]
     Dosage: 300 ML ONCE

REACTIONS (15)
  - ABDOMINAL PAIN [None]
  - ALCOHOL USE [None]
  - ANAEMIA [None]
  - ANOREXIA [None]
  - DIZZINESS [None]
  - DUODENAL ULCER [None]
  - FATIGUE [None]
  - GASTRIC ULCER [None]
  - GASTROINTESTINAL HAEMORRHAGE [None]
  - HEADACHE [None]
  - HYPOTENSION [None]
  - HYPOXIA [None]
  - MELAENA [None]
  - NAUSEA [None]
  - SINUS TACHYCARDIA [None]
